FAERS Safety Report 5379006-4 (Version None)
Quarter: 2007Q3

REPORT INFORMATION
  Report Type: 
  Country: None (occurrence: None)
  Receive Date: 20070705
  Receipt Date: 20070625
  Transmission Date: 20080115
  Serious: Yes (Hospitalization)
  Sender: FDA-Public Use
  Company Number: US-JNJFOC-20070606166

PATIENT
  Sex: Male
  Weight: 101.15 kg

DRUGS (3)
  1. INVEGA [Suspect]
     Indication: DEPRESSION
     Route: 048
  2. CYMBALTA [Concomitant]
     Indication: DEPRESSION
     Route: 048
  3. EFFEXOR [Concomitant]
     Indication: DEPRESSION
     Route: 048

REACTIONS (6)
  - AGGRESSION [None]
  - ANOREXIA [None]
  - BLOOD CREATINE INCREASED [None]
  - PSYCHOTIC DISORDER [None]
  - TREMOR [None]
  - WEIGHT DECREASED [None]
